FAERS Safety Report 25661023 (Version 1)
Quarter: 2025Q3

REPORT INFORMATION
  Report Type: Spontaneous
  Country: EU (occurrence: EU)
  Receive Date: 20250808
  Receipt Date: 20250808
  Transmission Date: 20251021
  Serious: Yes (Death)
  Sender: ALEXION PHARMACEUTICALS
  Company Number: None

PATIENT
  Age: 77 Year
  Sex: Male

DRUGS (2)
  1. TREMELIMUMAB [Suspect]
     Active Substance: TREMELIMUMAB
     Indication: Hepatic cancer
     Dates: start: 20250521, end: 20250611
  2. DURVALUMAB [Suspect]
     Active Substance: DURVALUMAB
     Indication: Hepatic cancer
     Dates: start: 20250521, end: 20250611

REACTIONS (1)
  - Myocarditis-myositis-myasthenia gravis overlap syndrome [Fatal]

NARRATIVE: CASE EVENT DATE: 20250522
